FAERS Safety Report 9849951 (Version 1)
Quarter: 2014Q1

REPORT INFORMATION
  Report Type: Spontaneous
  Country: CA (occurrence: CA)
  Receive Date: 20140128
  Receipt Date: 20140128
  Transmission Date: 20141002
  Serious: Yes (Life-Threatening, Other)
  Sender: FDA-Public Use
  Company Number: CA-009507513-1401CAN011264

PATIENT
  Age: 27 Year
  Sex: Female

DRUGS (1)
  1. NUVARING [Suspect]
     Indication: CONTRACEPTION

REACTIONS (7)
  - Adverse event [Unknown]
  - Pulmonary embolism [Unknown]
  - Oxygen supplementation [Unknown]
  - Anticoagulant therapy [Unknown]
  - Fear [Not Recovered/Not Resolved]
  - Blood disorder [Unknown]
  - Asthenia [Unknown]
